FAERS Safety Report 16455997 (Version 3)
Quarter: 2019Q3

REPORT INFORMATION
  Report Type: Spontaneous
  Country: JP (occurrence: JP)
  Receive Date: 20190620
  Receipt Date: 20190906
  Transmission Date: 20191004
  Serious: Yes (Hospitalization, Other)
  Sender: FDA-Public Use
  Company Number: JP-ACCORD-133569

PATIENT
  Age: 69 Year
  Sex: Female
  Weight: 66.5 kg

DRUGS (5)
  1. BEVACIZUMAB. [Suspect]
     Active Substance: BEVACIZUMAB
     Indication: NON-SMALL CELL LUNG CANCER STAGE I
     Dosage: 4 CYCLE
  2. CARBOPLATIN. [Concomitant]
     Active Substance: CARBOPLATIN
     Indication: NON-SMALL CELL LUNG CANCER STAGE I
  3. PACLITAXEL. [Concomitant]
     Active Substance: PACLITAXEL
     Indication: NON-SMALL CELL LUNG CANCER STAGE I
  4. RAMUCIRUMAB [Suspect]
     Active Substance: RAMUCIRUMAB
     Indication: NON-SMALL CELL LUNG CANCER STAGE I
     Dosage: EVERY 3 AND 4 WEEKS, 665MG/BODY
     Route: 042
  5. DOCETAXEL. [Suspect]
     Active Substance: DOCETAXEL
     Indication: NON-SMALL CELL LUNG CANCER STAGE I
     Dosage: EVERY 3 AND 4 WEEKS, 100MG/BODY
     Route: 042

REACTIONS (4)
  - Chylothorax [Recovered/Resolved]
  - Ascites [Recovered/Resolved]
  - Skin erosion [Recovered/Resolved]
  - Proteinuria [Recovered/Resolved]
